FAERS Safety Report 8557705-0 (Version None)
Quarter: 2012Q3

REPORT INFORMATION
  Report Type: 
  Country: None (occurrence: None)
  Receive Date: 20120801
  Receipt Date: 20120727
  Transmission Date: 20120928
  Serious: Yes (Hospitalization, Other)
  Sender: FDA-Public Use
  Company Number: US-PFIZER INC-2012103451

PATIENT
  Sex: Male

DRUGS (11)
  1. SEROQUEL [Concomitant]
     Indication: BIPOLAR DISORDER
     Dosage: 50 MG AND 100 MG
     Dates: start: 20030101, end: 20110101
  2. CELEXA [Concomitant]
     Indication: SUICIDAL IDEATION
  3. PRILOSEC [Concomitant]
     Indication: GASTROOESOPHAGEAL REFLUX DISEASE
     Dosage: UNK
     Dates: start: 20060101
  4. CELEXA [Concomitant]
     Indication: DEPRESSION
     Dosage: 40 MG, UNK
     Dates: start: 20050101, end: 20110101
  5. LEXAPRO [Concomitant]
     Indication: DEPRESSION
     Dosage: 30 MG, UNK
     Dates: start: 20050101, end: 20110101
  6. WELLBUTRIN [Concomitant]
     Indication: DEPRESSION
     Dosage: 100 MG, UNK
     Dates: start: 20060101, end: 20090101
  7. WELLBUTRIN [Concomitant]
     Indication: SUICIDAL IDEATION
  8. ZOLOFT [Concomitant]
     Indication: DEPRESSION
     Dosage: 50 MG, UNK
     Dates: start: 20060101, end: 20110101
  9. CHANTIX [Suspect]
     Indication: SMOKING CESSATION THERAPY
     Dosage: STARTER KIT
     Route: 048
     Dates: start: 20070626, end: 20070726
  10. LEXAPRO [Concomitant]
     Indication: SUICIDAL IDEATION
  11. ZOLOFT [Concomitant]
     Indication: SUICIDAL IDEATION

REACTIONS (3)
  - SCAR [None]
  - DEPRESSION [None]
  - SUICIDE ATTEMPT [None]
